FAERS Safety Report 13637790 (Version 1)
Quarter: 2017Q2

REPORT INFORMATION
  Report Type: Spontaneous
  Country: IT (occurrence: IT)
  Receive Date: 20170609
  Receipt Date: 20170609
  Transmission Date: 20170830
  Serious: Yes (Other)
  Sender: FDA-Public Use
  Company Number: IT-LUNDBECK-DKLU2032516

PATIENT
  Age: 2 Month
  Sex: Female

DRUGS (3)
  1. PHENOBARBITAL. [Concomitant]
     Active Substance: PHENOBARBITAL
     Indication: PRODUCT USED FOR UNKNOWN INDICATION
     Route: 065
  2. SABRIL [Suspect]
     Active Substance: VIGABATRIN
     Indication: EPILEPSY
     Route: 048
     Dates: start: 20170406, end: 20170428
  3. TAVOR (LORAZEPAM) [Concomitant]
     Active Substance: LORAZEPAM
     Indication: PRODUCT USED FOR UNKNOWN INDICATION
     Route: 065

REACTIONS (3)
  - Muscle spasms [Recovering/Resolving]
  - Rebound psychosis [Recovering/Resolving]
  - Muscle rigidity [Recovering/Resolving]

NARRATIVE: CASE EVENT DATE: 20170428
